FAERS Safety Report 13421980 (Version 4)
Quarter: 2017Q3

REPORT INFORMATION
  Report Type: Spontaneous
  Country: US (occurrence: US)
  Receive Date: 20170410
  Receipt Date: 20170721
  Transmission Date: 20171127
  Serious: Yes (Other)
  Sender: FDA-Public Use
  Company Number: US-PFIZER INC-2017156028

PATIENT
  Age: 76 Year
  Sex: Female

DRUGS (1)
  1. XELJANZ [Suspect]
     Active Substance: TOFACITINIB CITRATE
     Dosage: 5 MG (1 TABLET), DAILY
     Dates: start: 201509

REACTIONS (9)
  - Upper respiratory tract infection [Unknown]
  - Gait disturbance [Unknown]
  - Discomfort [Unknown]
  - Drug effect incomplete [Unknown]
  - Balance disorder [Unknown]
  - Malaise [Unknown]
  - Pain [Unknown]
  - Foot deformity [Unknown]
  - Herpes zoster [Unknown]

NARRATIVE: CASE EVENT DATE: 2016
